FAERS Safety Report 12614803 (Version 1)
Quarter: 2016Q3

REPORT INFORMATION
  Report Type: Spontaneous
  Country: US (occurrence: US)
  Receive Date: 20160802
  Receipt Date: 20160802
  Transmission Date: 20161109
  Serious: Yes (Death)
  Sender: FDA-Public Use
  Company Number: US-EDGEMONT-2016EDG00023

PATIENT
  Age: 35 Year
  Sex: Female

DRUGS (1)
  1. BUPROPION TABLETS [Suspect]
     Active Substance: BUPROPION
     Dosage: 13.5 TO 15.0 GRAMS, ONCE
     Route: 048

REACTIONS (9)
  - Generalised tonic-clonic seizure [None]
  - Ventricular tachyarrhythmia [None]
  - Intentional overdose [Fatal]
  - Myocardial stunning [Fatal]
  - Cardiac arrest [None]
  - Status epilepticus [None]
  - Hypotension [None]
  - Poisoning deliberate [Fatal]
  - Mental status changes [None]
